FAERS Safety Report 20737677 (Version 1)
Quarter: 2022Q2

REPORT INFORMATION
  Report Type: Spontaneous
  Country: US (occurrence: US)
  Receive Date: 20220422
  Receipt Date: 20220422
  Transmission Date: 20220721
  Serious: No
  Sender: FDA-Public Use
  Company Number: US-JNJFOC-20220432066

PATIENT
  Age: 72 Year
  Sex: Male
  Weight: 90.800 kg

DRUGS (7)
  1. TYLENOL [Suspect]
     Active Substance: ACETAMINOPHEN
     Indication: Chills
     Route: 065
  2. TYLENOL [Suspect]
     Active Substance: ACETAMINOPHEN
     Indication: Pyrexia
  3. COVID-19 VACCINE [Concomitant]
     Indication: COVID-19 immunisation
     Dosage: 1ST DOSE IN FEB
     Route: 065
     Dates: start: 202102
  4. COVID-19 VACCINE [Concomitant]
     Dosage: 2ND DOSE IN MARCH
     Route: 065
     Dates: start: 202103
  5. VFEND [Concomitant]
     Active Substance: VORICONAZOLE
     Indication: Pneumonia
     Route: 065
  6. METOPROLOL [Concomitant]
     Active Substance: METOPROLOL
     Indication: Blood pressure measurement
     Dosage: 500MG MORNING AND NIGHT
     Route: 065
  7. GLIMEPIRIDE [Concomitant]
     Active Substance: GLIMEPIRIDE
     Indication: Diabetes mellitus
     Route: 065

REACTIONS (4)
  - Hot flush [Recovered/Resolved]
  - Chills [Recovered/Resolved]
  - Hyperhidrosis [Unknown]
  - Product use in unapproved indication [Unknown]
